FAERS Safety Report 7953028-9 (Version None)
Quarter: 2011Q4

REPORT INFORMATION
  Report Type: 
  Country: None (occurrence: None)
  Receive Date: 20111201
  Receipt Date: 20111124
  Transmission Date: 20120403
  Serious: Yes (Hospitalization)
  Sender: FDA-Public Use
  Company Number: DE-ABBOTT-11P-062-0846486-00

PATIENT
  Sex: Female
  Weight: 160 kg

DRUGS (5)
  1. HUMIRA [Suspect]
     Dates: start: 20110701
  2. IBUPROFEN [Concomitant]
     Indication: PRODUCT USED FOR UNKNOWN INDICATION
  3. HUMIRA [Suspect]
     Indication: RHEUMATOID ARTHRITIS
     Dates: start: 20110501, end: 20110701
  4. METHOTREXATE [Concomitant]
     Indication: PRODUCT USED FOR UNKNOWN INDICATION
  5. ANALGESICS [Concomitant]
     Indication: PRODUCT USED FOR UNKNOWN INDICATION

REACTIONS (8)
  - PAIN [None]
  - WEIGHT INCREASED [None]
  - VISUAL ACUITY REDUCED [None]
  - INJECTION SITE PAIN [None]
  - HIP SURGERY [None]
  - BLOOD TEST ABNORMAL [None]
  - SPINAL COLUMN STENOSIS [None]
  - MOBILITY DECREASED [None]
